FAERS Safety Report 23002244 (Version 2)
Quarter: 2023Q4

REPORT INFORMATION
  Report Type: Spontaneous
  Country: US (occurrence: US)
  Receive Date: 20230928
  Receipt Date: 20231013
  Transmission Date: 20240109
  Serious: No
  Sender: FDA-Public Use
  Company Number: US-SA-SAC20230926000419

PATIENT
  Sex: Female
  Weight: 78.8 kg

DRUGS (3)
  1. DUPIXENT [Suspect]
     Active Substance: DUPILUMAB
     Indication: Dermatitis allergic
     Dosage: 600 MG, 1X
     Route: 058
  2. DUPIXENT [Suspect]
     Active Substance: DUPILUMAB
     Dosage: 300 MG, QW
  3. CLARITIN [Concomitant]
     Active Substance: LORATADINE

REACTIONS (3)
  - Injection site pain [Unknown]
  - Product preparation error [Unknown]
  - Incorrect dose administered [Unknown]
